FAERS Safety Report 5346848-0 (Version None)
Quarter: 2007Q2

REPORT INFORMATION
  Report Type: 
  Country: None (occurrence: None)
  Receive Date: 20070605
  Receipt Date: 20070521
  Transmission Date: 20071010
  Serious: Yes (Hospitalization, Other)
  Sender: FDA-Public Use
  Company Number: US-PFIZER INC-2007044526

PATIENT
  Sex: Male
  Weight: 81.6 kg

DRUGS (5)
  1. SOLU-MEDROL [Suspect]
     Route: 042
  2. REBIF [Suspect]
     Indication: MULTIPLE SCLEROSIS
     Dosage: DAILY DOSE:44MCG
     Route: 058
  3. PROVIGIL [Concomitant]
     Dosage: FREQ:AS REQUIRED
  4. VALIUM [Concomitant]
     Dosage: FREQ:AS REQUIRED
  5. PEPCID [Concomitant]

REACTIONS (3)
  - DIVERTICULAR PERFORATION [None]
  - INCISION SITE INFECTION [None]
  - INCISIONAL HERNIA [None]
